FAERS Safety Report 5022942-9 (Version None)
Quarter: 2006Q2

REPORT INFORMATION
  Report Type: 
  Country: None (occurrence: None)
  Receive Date: 20060426
  Receipt Date: 20060118
  Transmission Date: 20061013
  Serious: Yes (Other)
  Sender: FDA-Public Use
  Company Number: 2006011180

PATIENT
  Age: 76 Year
  Sex: Female
  Weight: 75.2971 kg

DRUGS (8)
  1. LYRICA [Suspect]
     Indication: POST HERPETIC NEURALGIA
     Dosage: 100 MG (50 MG, 2 IN 1 D), ORAL
     Route: 048
     Dates: start: 20060114
  2. OXYCODONE (OXYCODONE) [Concomitant]
  3. PROCARDIA XL [Concomitant]
  4. TOPROL-XL [Concomitant]
  5. LEXAPRO [Concomitant]
  6. CLONOPIN [Concomitant]
  7. COUMADIN [Concomitant]
  8. XALATAN [Concomitant]

REACTIONS (1)
  - DIZZINESS [None]
